FAERS Safety Report 4357437-9 (Version None)
Quarter: 2004Q2

REPORT INFORMATION
  Report Type: 
  Country: None (occurrence: None)
  Receive Date: 20040506
  Receipt Date: 20040426
  Transmission Date: 20050107
  Serious: Yes (Death, Life-Threatening)
  Sender: FDA-Public Use
  Company Number: HQWYE289131MAR04

PATIENT
  Age: 80 Year
  Sex: Female

DRUGS (13)
  1. TAZOCIN          (PIPERACILLIN/TAZOBACTAM, INJECTION) [Suspect]
     Indication: URINARY TRACT INFECTION
     Dosage: 5 GRAMS DAILY; 2.5 GRAMS DAILY
     Route: 042
     Dates: start: 20031217, end: 20031219
  2. TAZOCIN          (PIPERACILLIN/TAZOBACTAM, INJECTION) [Suspect]
     Indication: URINARY TRACT INFECTION
     Dosage: 5 GRAMS DAILY; 2.5 GRAMS DAILY
     Route: 042
     Dates: start: 20031220, end: 20031220
  3. GLOVENIN (IMMUNOGLOBULIN HUMAN NORMAL) [Concomitant]
  4. FOY (GABEXATE MESILATE) [Concomitant]
  5. ENALAPRIL MALEATE [Concomitant]
  6. DIGOXIN [Concomitant]
  7. DIART (AZOSEMIDE) [Concomitant]
  8. ALLOPURINOL [Concomitant]
  9. LASIX [Concomitant]
  10. FAMOTIDINE [Concomitant]
  11. POLARAMINE (CHLORPHENAMINE MALEATE) [Concomitant]
  12. CELESTAMINE (BETAMETHASONE/CHLORPHENAMINE MALEATE) [Concomitant]
  13. MEXITIL [Concomitant]

REACTIONS (10)
  - BLOOD PRESSURE DECREASED [None]
  - CATHETER SITE HAEMORRHAGE [None]
  - COMA HEPATIC [None]
  - CONCOMITANT DISEASE PROGRESSION [None]
  - DISSEMINATED INTRAVASCULAR COAGULATION [None]
  - HAEMORRHAGE SUBCUTANEOUS [None]
  - HEPATITIS FULMINANT [None]
  - POOR PERIPHERAL CIRCULATION [None]
  - RENAL FAILURE [None]
  - THROMBOSIS [None]
